FAERS Safety Report 8805558 (Version 2)
Quarter: 2015Q1

REPORT INFORMATION
  Report Type: Report from Study
  Country: US (occurrence: US)
  Receive Date: 20120924
  Receipt Date: 20150225
  Transmission Date: 20150721
  Serious: Yes (Death)
  Sender: FDA-Public Use
  Company Number: US-ROCHE-1090940

PATIENT
  Sex: Female

DRUGS (19)
  1. SYNTHROID [Concomitant]
     Active Substance: LEVOTHYROXINE SODIUM
     Route: 065
  2. MARINOL (UNITED STATES) [Concomitant]
     Route: 065
  3. AVASTIN [Suspect]
     Active Substance: BEVACIZUMAB
     Indication: OVARIAN CANCER
     Route: 042
     Dates: start: 20071014
  4. OMEPRAZOLE. [Concomitant]
     Active Substance: OMEPRAZOLE
     Route: 065
  5. CELEBREX [Concomitant]
     Active Substance: CELECOXIB
     Route: 065
  6. ATIVAN [Concomitant]
     Active Substance: LORAZEPAM
     Indication: ANXIETY
     Route: 048
  7. GEMCITABINE [Concomitant]
     Active Substance: GEMCITABINE\GEMCITABINE HYDROCHLORIDE
     Route: 042
  8. LORAZEPAM. [Concomitant]
     Active Substance: LORAZEPAM
  9. LORAZEPAM. [Concomitant]
     Active Substance: LORAZEPAM
  10. VICODIN [Concomitant]
     Active Substance: ACETAMINOPHEN\HYDROCODONE BITARTRATE
  11. ADVAIR HFA [Concomitant]
     Active Substance: FLUTICASONE PROPIONATE\SALMETEROL XINAFOATE
     Dosage: 250/50 1 PUFF BID
     Route: 065
  12. VENLAFAXINE [Concomitant]
     Active Substance: VENLAFAXINE HYDROCHLORIDE
     Route: 065
  13. CARBOPLATIN. [Concomitant]
     Active Substance: CARBOPLATIN
     Route: 065
  14. FENTANYL. [Concomitant]
     Active Substance: FENTANYL
     Route: 065
  15. KYTRIL [Concomitant]
     Active Substance: GRANISETRON HYDROCHLORIDE
     Route: 065
  16. LASIX [Concomitant]
     Active Substance: FUROSEMIDE
     Route: 065
  17. AVASTIN [Suspect]
     Active Substance: BEVACIZUMAB
     Indication: MALIGNANT NEOPLASM OF UTERINE ADNEXA
     Route: 042
  18. COMPAZINE [Concomitant]
     Active Substance: PROCHLORPERAZINE MALEATE
  19. DEXAMETHASON [Concomitant]
     Active Substance: DEXAMETHASONE
     Route: 065

REACTIONS (15)
  - Decreased appetite [Unknown]
  - Feeling abnormal [Unknown]
  - Death [Fatal]
  - Malaise [Unknown]
  - Diarrhoea [Unknown]
  - Hypokalaemia [Unknown]
  - Fatigue [Unknown]
  - Back pain [Recovered/Resolved]
  - Peripheral swelling [Recovering/Resolving]
  - Ovarian cancer recurrent [Unknown]
  - Nausea [Unknown]
  - Weight decreased [Unknown]
  - Erythema [Unknown]
  - Oedema [Unknown]
  - Dyspnoea [Unknown]
